FAERS Safety Report 21960645 (Version 4)
Quarter: 2024Q2

REPORT INFORMATION
  Report Type: Report from Study
  Country: US (occurrence: US)
  Receive Date: 20230207
  Receipt Date: 20240429
  Transmission Date: 20240716
  Serious: Yes (Other)
  Sender: FDA-Public Use
  Company Number: US-ABBVIE-4296407

PATIENT
  Age: 76 Year
  Sex: Male

DRUGS (3)
  1. LUPRON DEPOT [Suspect]
     Active Substance: LEUPROLIDE ACETATE
     Indication: Product used for unknown indication
     Dosage: LAST ADMINISTRATION DATE: 2023
     Route: 030
     Dates: start: 20230118
  2. LUPRON DEPOT [Suspect]
     Active Substance: LEUPROLIDE ACETATE
     Dosage: LAST ADMINISTRATION DATE: 2023
     Route: 065
     Dates: start: 20230204
  3. LUPRON DEPOT [Suspect]
     Active Substance: LEUPROLIDE ACETATE
     Route: 065
     Dates: start: 20230728

REACTIONS (4)
  - Prostate cancer metastatic [Unknown]
  - Prostatic specific antigen increased [Unknown]
  - Blood iron decreased [Unknown]
  - Increased appetite [Unknown]

NARRATIVE: CASE EVENT DATE: 20230101
